FAERS Safety Report 8737737 (Version 2)
Quarter: 2013Q4

REPORT INFORMATION
  Report Type: Spontaneous
  Country: US (occurrence: US)
  Receive Date: 20120822
  Receipt Date: 20131101
  Transmission Date: 20140711
  Serious: No
  Sender: FDA-Public Use
  Company Number: US-009507513-1204USA01341

PATIENT
  Age: 36 Year
  Sex: Male

DRUGS (2)
  1. AZASITE [Suspect]
     Indication: MEIBOMIAN GLAND DYSFUNCTION
     Dosage: 2 GTT, BID IN BOTH EYES
     Route: 047
     Dates: start: 20120323
  2. AZASITE [Suspect]
     Indication: DRY EYE

REACTIONS (4)
  - Overdose [Unknown]
  - Drug dose omission [Unknown]
  - No adverse event [Unknown]
  - Off label use [Unknown]
